FAERS Safety Report 7827072-6 (Version None)
Quarter: 2011Q4

REPORT INFORMATION
  Report Type: 
  Country: None (occurrence: None)
  Receive Date: 20111020
  Receipt Date: 20111011
  Transmission Date: 20120403
  Serious: Yes (Other)
  Sender: FDA-Public Use
  Company Number: KR-JNJFOC-20110904926

PATIENT
  Age: 14 Year
  Sex: Male

DRUGS (8)
  1. CONCERTA [Suspect]
     Indication: DISTURBANCE IN ATTENTION
     Route: 048
     Dates: start: 20100430
  2. BUSPIRONE HCL [Concomitant]
     Route: 048
     Dates: start: 20100615
  3. CONCERTA [Suspect]
     Route: 048
     Dates: start: 20100615, end: 20100701
  4. QUETIAPINE [Concomitant]
     Indication: HYPERPROLACTINAEMIA
     Route: 048
     Dates: start: 20100615
  5. BUSPIRONE HCL [Concomitant]
     Route: 048
  6. BUSPIRONE HCL [Concomitant]
     Route: 048
     Dates: start: 20100416
  7. QUETIAPINE [Concomitant]
     Route: 048
     Dates: start: 20100430
  8. CONCERTA [Suspect]
     Route: 048
     Dates: start: 20100701

REACTIONS (5)
  - AGGRESSION [None]
  - MOOD SWINGS [None]
  - FEELING ABNORMAL [None]
  - ILL-DEFINED DISORDER [None]
  - TIC [None]
